FAERS Safety Report 11146208 (Version 2)
Quarter: 2015Q2

REPORT INFORMATION
  Report Type: Spontaneous
  Country: JP (occurrence: JP)
  Receive Date: 20150528
  Receipt Date: 20150608
  Transmission Date: 20150821
  Serious: Yes (Hospitalization, Other)
  Sender: FDA-Public Use
  Company Number: JP-JNJFOC-20150500014

PATIENT
  Age: 73 Year
  Sex: Male

DRUGS (6)
  1. MUCOSTA [Concomitant]
     Active Substance: REBAMIPIDE
     Route: 048
  2. ZYTIGA [Suspect]
     Active Substance: ABIRATERONE ACETATE
     Indication: PROSTATE CANCER
     Route: 048
     Dates: start: 20150415, end: 20150427
  3. ZYTIGA [Suspect]
     Active Substance: ABIRATERONE ACETATE
     Indication: PROSTATE CANCER
     Route: 048
     Dates: start: 20150304, end: 20150403
  4. PREDNISOLONE. [Concomitant]
     Active Substance: PREDNISOLONE
     Indication: PROSTATE CANCER
     Route: 048
     Dates: start: 20150304
  5. ACINON [Concomitant]
     Active Substance: NIZATIDINE
     Route: 048
  6. URIEF [Concomitant]
     Active Substance: SILODOSIN
     Indication: DYSURIA
     Route: 048

REACTIONS (2)
  - Pancreatic duct stenosis [Unknown]
  - Liver function test abnormal [Recovered/Resolved]

NARRATIVE: CASE EVENT DATE: 20150403
